FAERS Safety Report 17358874 (Version 1)
Quarter: 2020Q1

REPORT INFORMATION
  Report Type: Spontaneous
  Country: AT (occurrence: AT)
  Receive Date: 20200202
  Receipt Date: 20200202
  Transmission Date: 20200409
  Serious: Yes (Other)
  Sender: FDA-Public Use
  Company Number: AT-AMGEN-AUTNI2018167050

PATIENT
  Age: 66 Year
  Sex: Female
  Weight: 89 kg

DRUGS (30)
  1. TRASTUZUMAB. [Suspect]
     Active Substance: TRASTUZUMAB
     Indication: HER-2 POSITIVE BREAST CANCER
     Dosage: 712 MILLIGRAM, Q3WK
     Route: 042
     Dates: start: 20170324
  2. PERTUZUMAB. [Suspect]
     Active Substance: PERTUZUMAB
     Indication: HER-2 POSITIVE BREAST CANCER
     Dosage: 840 MILLIGRAM, QD
     Route: 042
     Dates: start: 20170324
  3. ULSAL [Concomitant]
     Active Substance: RANITIDINE HYDROCHLORIDE
     Dosage: UNK
     Route: 065
     Dates: start: 20170414, end: 20191119
  4. FORTECORTIN [Concomitant]
     Active Substance: DEXAMETHASONE
     Dosage: UNK
     Route: 065
     Dates: start: 20181017
  5. CONCOR [Concomitant]
     Active Substance: BISOPROLOL FUMARATE
     Indication: HYPERTENSION
     Dosage: 420 UNK
     Route: 065
     Dates: start: 20180814, end: 20191007
  6. ARIMIDEX [Suspect]
     Active Substance: ANASTROZOLE
     Indication: HER-2 POSITIVE BREAST CANCER
     Dosage: 1 MILLIGRAM, QD
     Route: 048
     Dates: start: 20170324
  7. MEXALEN [Concomitant]
     Active Substance: ACETAMINOPHEN
     Indication: DYSPNOEA EXERTIONAL
     Dosage: UNK
     Route: 065
     Dates: start: 20180715
  8. NOVALGIN (METAMIZOLE SODIUM) [Concomitant]
     Active Substance: METAMIZOLE SODIUM
     Indication: DYSPNOEA EXERTIONAL
  9. TAXOTERE [Suspect]
     Active Substance: DOCETAXEL
     Dosage: 137 MILLIGRAM, Q3WK
     Route: 042
     Dates: start: 20180608, end: 20180608
  10. TORASEMIDE [Concomitant]
     Active Substance: TORSEMIDE
     Indication: HYPERTENSION
     Dosage: UNK
     Route: 065
     Dates: start: 20180615
  11. NOVALGIN (METAMIZOLE SODIUM) [Concomitant]
     Active Substance: METAMIZOLE SODIUM
     Indication: PAIN
     Dosage: UNK
     Route: 065
     Dates: start: 20180715
  12. KYTRIL [Concomitant]
     Active Substance: GRANISETRON HYDROCHLORIDE
     Dosage: UNK
     Route: 065
     Dates: start: 20180608
  13. ACETYLSALICYLIC ACID [Concomitant]
     Active Substance: ASPIRIN
     Indication: HYPERTENSION
     Dosage: UNK
     Route: 065
     Dates: start: 20171120, end: 20190615
  14. PERTUZUMAB. [Suspect]
     Active Substance: PERTUZUMAB
     Dosage: 420 MILLIGRAM, QD
     Route: 042
     Dates: start: 20180723
  15. FOSTER [Concomitant]
     Active Substance: BECLOMETHASONE\FORMOTEROL
     Indication: DYSPNOEA
     Dosage: UNK
     Route: 065
     Dates: start: 20171120
  16. CORTISON [Concomitant]
     Active Substance: CORTISONE ACETATE
     Dosage: UNK
     Route: 065
     Dates: start: 20180608
  17. ANDOL [Concomitant]
     Active Substance: ASPIRIN
     Indication: HYPERTENSION
     Dosage: UNK
     Route: 065
     Dates: start: 20171120
  18. MOLAXOLE [Concomitant]
     Active Substance: POLYETHYLENE GLYCOL 3350\POTASSIUM CHLORIDE\SODIUM BICARBONATE\SODIUM CHLORIDE
     Indication: DYSPNOEA EXERTIONAL
     Dosage: UNK
     Route: 065
     Dates: start: 20180715
  19. CAL D VITA [Concomitant]
     Dosage: UNK
     Route: 065
     Dates: start: 20170505, end: 20190615
  20. AVELOX [Concomitant]
     Active Substance: MOXIFLOXACIN HYDROCHLORIDE
     Indication: DYSPNOEA EXERTIONAL
     Dosage: UNK
     Route: 065
     Dates: start: 20180712
  21. FENISTIL [Concomitant]
     Active Substance: DIMETHINDENE
     Dosage: UNK
     Route: 065
     Dates: start: 20170414
  22. TRITAZIDE [Concomitant]
     Active Substance: HYDROCHLOROTHIAZIDE\RAMIPRIL
     Route: 065
  23. PANTOPRAZOL [Concomitant]
     Active Substance: PANTOPRAZOLE SODIUM
     Route: 065
  24. TAXOTERE [Suspect]
     Active Substance: DOCETAXEL
     Indication: HER-2 POSITIVE BREAST CANCER
     Dosage: 132.78 MILLIGRAM
     Route: 042
     Dates: start: 20180926
  25. TAXOTERE [Suspect]
     Active Substance: DOCETAXEL
     Dosage: 106.22 MILLIGRAM, QD
     Route: 042
     Dates: start: 20181017
  26. FASLODEX [Suspect]
     Active Substance: FULVESTRANT
     Indication: HER-2 POSITIVE BREAST CANCER
     Dosage: 500 MILLIGRAM, Q2WK
     Route: 030
     Dates: start: 20181128
  27. XGEVA [Concomitant]
     Active Substance: DENOSUMAB
     Dosage: UNK
     Route: 065
     Dates: start: 20181017
  28. TORASEMIDE [Concomitant]
     Active Substance: TORSEMIDE
     Indication: DYSPNOEA EXERTIONAL
     Dosage: UNK
     Route: 065
     Dates: start: 20180103
  29. DEXABENE [Concomitant]
     Dosage: UNK
     Route: 065
     Dates: start: 20181107
  30. FORTECORTIN [Concomitant]
     Active Substance: DEXAMETHASONE
     Dosage: UNK
     Dates: start: 20180723

REACTIONS (4)
  - Off label use [Unknown]
  - Dysgeusia [Recovered/Resolved]
  - Fatigue [Recovered/Resolved]
  - Polyneuropathy [Not Recovered/Not Resolved]

NARRATIVE: CASE EVENT DATE: 20181008
